FAERS Safety Report 15953110 (Version 3)
Quarter: 2019Q3

REPORT INFORMATION
  Report Type: Spontaneous
  Country: US (occurrence: US)
  Receive Date: 20190211
  Receipt Date: 20190821
  Transmission Date: 20191004
  Serious: Yes (Other)
  Sender: FDA-Public Use
  Company Number: US-ASTRAZENECA-2018SF66237

PATIENT
  Sex: Female
  Weight: 72.6 kg

DRUGS (22)
  1. FLEXERIL [Concomitant]
     Active Substance: CYCLOBENZAPRINE HYDROCHLORIDE
  2. HYDROMORPHON [Concomitant]
     Active Substance: HYDROMORPHONE
  3. OXYCONTIN [Concomitant]
     Active Substance: OXYCODONE HYDROCHLORIDE
  4. TRAMADOL. [Concomitant]
     Active Substance: TRAMADOL
  5. NEXIUM [Suspect]
     Active Substance: ESOMEPRAZOLE MAGNESIUM
     Route: 048
     Dates: start: 20100101
  6. GLIMIPERIDE [Concomitant]
     Active Substance: GLIMEPIRIDE
  7. NEURONTIN [Concomitant]
     Active Substance: GABAPENTIN
  8. PERCOCET [Concomitant]
     Active Substance: ACETAMINOPHEN\OXYCODONE HYDROCHLORIDE
  9. VIOKASE [Concomitant]
     Active Substance: PANCRELIPASE
  10. METFORMIN [Concomitant]
     Active Substance: METFORMIN HYDROCHLORIDE
  11. NEXIUM [Suspect]
     Active Substance: ESOMEPRAZOLE MAGNESIUM
     Dosage: 1/2 CAPSULE BID
     Route: 048
  12. PEPCID [Concomitant]
     Active Substance: FAMOTIDINE
  13. AMBIEN [Concomitant]
     Active Substance: ZOLPIDEM TARTRATE
  14. PAROXETINE. [Concomitant]
     Active Substance: PAROXETINE
  15. LISINOPRIL. [Concomitant]
     Active Substance: LISINOPRIL
  16. PAXIL [Concomitant]
     Active Substance: PAROXETINE HYDROCHLORIDE
  17. OMEPRAZOLE. [Suspect]
     Active Substance: OMEPRAZOLE
     Route: 048
  18. FENTANYL. [Concomitant]
     Active Substance: FENTANYL
  19. ZANTAC [Concomitant]
     Active Substance: RANITIDINE HYDROCHLORIDE
  20. CYCLOBENZAPRI [Concomitant]
  21. GABAPENTIN. [Concomitant]
     Active Substance: GABAPENTIN
  22. LORAZEPAM. [Concomitant]
     Active Substance: LORAZEPAM

REACTIONS (6)
  - Acute kidney injury [Unknown]
  - Chronic kidney disease [Unknown]
  - Rebound acid hypersecretion [Unknown]
  - Renal failure [Unknown]
  - Renal injury [Unknown]
  - General physical health deterioration [Unknown]
